FAERS Safety Report 6002300-0 (Version None)
Quarter: 2008Q4

REPORT INFORMATION
  Report Type: 
  Country: None (occurrence: None)
  Receive Date: 20081215
  Receipt Date: 20071113
  Transmission Date: 20090506
  Serious: No
  Sender: FDA-Public Use
  Company Number: US-AMGEN-KDL252483

PATIENT
  Sex: Male

DRUGS (1)
  1. ENBREL [Suspect]
     Indication: ANKYLOSING SPONDYLITIS
     Route: 058
     Dates: start: 20070506

REACTIONS (10)
  - ARTHRALGIA [None]
  - ASTHENIA [None]
  - HEADACHE [None]
  - INJECTION SITE PAIN [None]
  - INSOMNIA [None]
  - NAUSEA [None]
  - NECK PAIN [None]
  - NIGHTMARE [None]
  - SINUSITIS [None]
  - VOMITING [None]
